FAERS Safety Report 21794166 (Version 1)
Quarter: 2022Q4

REPORT INFORMATION
  Report Type: Spontaneous
  Country: PT (occurrence: PT)
  Receive Date: 20221229
  Receipt Date: 20221229
  Transmission Date: 20230113
  Serious: Yes (Other)
  Sender: FDA-Public Use
  Company Number: PT-SUN PHARMACEUTICAL INDUSTRIES LTD-2022R1-371028

PATIENT
  Age: 43 Year

DRUGS (4)
  1. VALPROIC ACID [Suspect]
     Active Substance: VALPROIC ACID
     Indication: Bipolar disorder
     Dosage: 500 MILLIGRAM, DAILY (PER 24H)
     Route: 042
  2. VALPROIC ACID [Suspect]
     Active Substance: VALPROIC ACID
     Indication: Mania
  3. QUETIAPINE [Suspect]
     Active Substance: QUETIAPINE
     Indication: Bipolar disorder
     Dosage: 200 MILLIGRAM, DAILY (PER 24H)
     Route: 065
  4. QUETIAPINE [Suspect]
     Active Substance: QUETIAPINE
     Indication: Mania

REACTIONS (2)
  - Treatment noncompliance [Unknown]
  - Disease recurrence [Unknown]
